FAERS Safety Report 5875007-8 (Version None)
Quarter: 2008Q3

REPORT INFORMATION
  Report Type: 
  Country: None (occurrence: None)
  Receive Date: 20080909
  Receipt Date: 20080901
  Transmission Date: 20090109
  Serious: Yes (Other)
  Sender: FDA-Public Use
  Company Number: FR-ASTRAZENECA-2008CG01291

PATIENT
  Age: 16467 Day
  Sex: Female

DRUGS (3)
  1. XYLOCAINE [Suspect]
     Indication: LOCAL ANAESTHESIA
     Route: 058
     Dates: start: 20080626, end: 20080626
  2. XYLOCAINE [Suspect]
     Route: 058
     Dates: start: 20080701, end: 20080701
  3. BRISTOPEN [Suspect]
     Route: 042
     Dates: start: 20080627, end: 20080701

REACTIONS (1)
  - TOXIC EPIDERMAL NECROLYSIS [None]
